FAERS Safety Report 16799398 (Version 2)
Quarter: 2019Q3

REPORT INFORMATION
  Report Type: Spontaneous
  Country: GB (occurrence: GB)
  Receive Date: 20190912
  Receipt Date: 20190919
  Transmission Date: 20191005
  Serious: Yes (Other)
  Sender: FDA-Public Use
  Company Number: GB-PFIZER INC-2019388229

PATIENT
  Age: 23 Year
  Sex: Female
  Weight: 139.7 kg

DRUGS (2)
  1. TRIMETHOPRIM. [Interacting]
     Active Substance: TRIMETHOPRIM
     Indication: URINARY TRACT INFECTION
     Dosage: 200 MG, UNK
     Route: 048
     Dates: start: 20190813, end: 20190814
  2. SERTRALINE HCL [Suspect]
     Active Substance: SERTRALINE HYDROCHLORIDE
     Dosage: UNK

REACTIONS (4)
  - Dehydration [Unknown]
  - Vomiting [Recovered/Resolved with Sequelae]
  - Labelled drug-drug interaction medication error [Unknown]
  - Dizziness [Unknown]

NARRATIVE: CASE EVENT DATE: 20190814
